FAERS Safety Report 9858539 (Version 1)
Quarter: 2014Q1

REPORT INFORMATION
  Report Type: Report from Study
  Country: GB (occurrence: GB)
  Receive Date: 20140131
  Receipt Date: 20140131
  Transmission Date: 20141002
  Serious: Yes (Hospitalization)
  Sender: FDA-Public Use
  Company Number: GB-009507513-1401GBR014113

PATIENT
  Age: 48 Year
  Sex: Female

DRUGS (2)
  1. VORINOSTAT [Suspect]
     Indication: PLASMA CELL MYELOMA
     Dosage: 300 MG, QD, DAYS 1-7 AND 15-21, EVERY 28 DAYS CYLCE
     Route: 048
     Dates: start: 20130813, end: 20140119
  2. LENALIDOMIDE [Suspect]
     Indication: PLASMA CELL MYELOMA
     Dosage: 5 MG, QD, DAYS 1-21, EVERY 28 DAYS CYLCE
     Route: 048
     Dates: start: 20130813, end: 20140119

REACTIONS (1)
  - Lower respiratory tract infection [Recovered/Resolved with Sequelae]
